FAERS Safety Report 18238931 (Version 2)
Quarter: 2020Q3

REPORT INFORMATION
  Report Type: Spontaneous
  Country: CZ (occurrence: CZ)
  Receive Date: 20200907
  Receipt Date: 20200910
  Transmission Date: 20201103
  Serious: Yes (Death, Life-Threatening, Hospitalization, Disabling, Other)
  Sender: FDA-Public Use
  Company Number: CZ-BRISTOL-MYERS SQUIBB COMPANY-BMS-2020-072250

PATIENT
  Age: 64 Year
  Sex: Female
  Weight: 61 kg

DRUGS (3)
  1. BICALUTAMID [Concomitant]
     Active Substance: BICALUTAMIDE
     Indication: MESOTHELIOMA MALIGNANT
     Route: 065
     Dates: start: 20200417, end: 20200629
  2. VINORELBINE [Concomitant]
     Active Substance: VINORELBINE TARTRATE
     Indication: MESOTHELIOMA MALIGNANT
     Route: 042
     Dates: start: 20200417, end: 20200626
  3. OPDIVO [Suspect]
     Active Substance: NIVOLUMAB
     Indication: NEOPLASM MALIGNANT
     Dosage: ONETIME USE
     Route: 042
     Dates: start: 20200813, end: 20200813

REACTIONS (9)
  - Dysarthria [Not Recovered/Not Resolved]
  - Ophthalmoplegia [Not Recovered/Not Resolved]
  - Intentional product use issue [Unknown]
  - Dysphagia [Not Recovered/Not Resolved]
  - Eyelid ptosis [Not Recovered/Not Resolved]
  - Respiratory failure [Not Recovered/Not Resolved]
  - Myositis [Fatal]
  - Paraparesis [Not Recovered/Not Resolved]
  - Prescribed underdose [Unknown]

NARRATIVE: CASE EVENT DATE: 20200828
